FAERS Safety Report 20638035 (Version 6)
Quarter: 2025Q4

REPORT INFORMATION
  Report Type: Report from Study
  Country: US (occurrence: US)
  Receive Date: 20220325
  Receipt Date: 20251030
  Transmission Date: 20260118
  Serious: No
  Sender: TAKEDA
  Company Number: US-TAKEDA-US202025799

PATIENT
  Age: 70 Year
  Sex: Male

DRUGS (7)
  1. TEDUGLUTIDE [Suspect]
     Active Substance: TEDUGLUTIDE
     Indication: Short-bowel syndrome
     Dosage: 0.38 MILLILITER, QD
     Dates: start: 20181019
  2. TEDUGLUTIDE [Suspect]
     Active Substance: TEDUGLUTIDE
     Indication: Deformity
     Dosage: 3.8 MILLIGRAM, QD
     Dates: start: 201810
  3. TEDUGLUTIDE [Suspect]
     Active Substance: TEDUGLUTIDE
     Indication: Crohn^s disease
     Dosage: 38 MILLIGRAM, QD
     Dates: start: 202109
  4. TEDUGLUTIDE [Suspect]
     Active Substance: TEDUGLUTIDE
     Indication: Fistula
     Dosage: 0.38 MILLILITER, QD
  5. TEDUGLUTIDE [Suspect]
     Active Substance: TEDUGLUTIDE
     Indication: Enteritis
     Dosage: 0.38 MILLILITER, QD
  6. TEDUGLUTIDE [Suspect]
     Active Substance: TEDUGLUTIDE
     Dosage: 0.38 MILLILITER, QD
  7. STELARA [Concomitant]
     Active Substance: USTEKINUMAB

REACTIONS (7)
  - Weight fluctuation [Unknown]
  - Gastrointestinal disorder [Unknown]
  - Syringe issue [Unknown]
  - Circumstance or information capable of leading to medication error [Unknown]
  - Flatulence [Unknown]
  - Abdominal pain [Recovering/Resolving]
  - Product packaging quantity issue [Unknown]
